FAERS Safety Report 10058016 (Version 1)
Quarter: 2014Q2

REPORT INFORMATION
  Report Type: Spontaneous
  Country: US (occurrence: None)
  Receive Date: 20140403
  Receipt Date: 20140403
  Transmission Date: 20141212
  Serious: Yes (Other)
  Sender: FDA-Public Use
  Company Number: None

PATIENT
  Age: 69 Year
  Sex: Female

DRUGS (1)
  1. AVELOX 400 MG [Suspect]
     Indication: INFECTION
     Dosage: 1 TABLET, QD, ORAL
     Route: 048

REACTIONS (2)
  - Nightmare [None]
  - Palpitations [None]
